FAERS Safety Report 22651170 (Version 1)
Quarter: 2023Q2

REPORT INFORMATION
  Report Type: Spontaneous
  Country: JP (occurrence: None)
  Receive Date: 20230628
  Receipt Date: 20230628
  Transmission Date: 20230722
  Serious: Yes (Hospitalization)
  Sender: FDA-Public Use
  Company Number: 2023A122166

PATIENT
  Age: 34 Year
  Sex: Male

DRUGS (4)
  1. DAPAGLIFLOZIN [Suspect]
     Active Substance: DAPAGLIFLOZIN
     Indication: Diabetes mellitus
     Dosage: DOSE UNKNOWN
     Route: 048
  2. METFORMIN HYDROCHLORIDE [Suspect]
     Active Substance: METFORMIN HYDROCHLORIDE
     Route: 048
  3. OZEMPIC [Suspect]
     Active Substance: SEMAGLUTIDE
     Route: 058
  4. VALSARTAN [Suspect]
     Active Substance: VALSARTAN
     Route: 048

REACTIONS (3)
  - Abdominal pain [Not Recovered/Not Resolved]
  - Enteritis infectious [Unknown]
  - Off label use [Unknown]

NARRATIVE: CASE EVENT DATE: 20230522
